FAERS Safety Report 24082445 (Version 1)
Quarter: 2024Q3

REPORT INFORMATION
  Report Type: Spontaneous
  Country: US (occurrence: US)
  Receive Date: 20240712
  Receipt Date: 20240712
  Transmission Date: 20241017
  Serious: No
  Sender: Steriscience PTE
  Company Number: US-STERISCIENCE B.V.-2024-ST-000655

PATIENT
  Age: 71 Year
  Sex: Female
  Weight: 90 kg

DRUGS (4)
  1. MYCOPHENOLATE MOFETIL [Suspect]
     Active Substance: MYCOPHENOLATE MOFETIL
     Indication: Myasthenia gravis
     Dosage: UNK
     Route: 065
  2. MYCOPHENOLATE MOFETIL [Suspect]
     Active Substance: MYCOPHENOLATE MOFETIL
     Indication: Immunosuppressant drug therapy
  3. EFGARTIGIMOD ALFA [Suspect]
     Active Substance: EFGARTIGIMOD ALFA
     Indication: Myasthenia gravis
     Dosage: 10 MG/KG WEEKLY?FOR AN INITIAL FOUR CYCLESWEEKLY?FOR AN INITIAL FOUR CYCLES
     Route: 042
  4. EFGARTIGIMOD ALFA [Suspect]
     Active Substance: EFGARTIGIMOD ALFA
     Dosage: 10 MG/KG?4?WEEKLY WITH 4-WEEK INTERVALS?
     Route: 042

REACTIONS (2)
  - Gastrointestinal infection [Unknown]
  - Off label use [Unknown]
